FAERS Safety Report 4495830-4 (Version None)
Quarter: 2004Q4

REPORT INFORMATION
  Report Type: 
  Country: None (occurrence: None)
  Receive Date: 20041108
  Receipt Date: 20040811
  Transmission Date: 20050328
  Serious: Yes (Hospitalization)
  Sender: FDA-Public Use
  Company Number: JP-GLAXOSMITHKLINE-B0342531A

PATIENT
  Age: 18 Year
  Sex: Female

DRUGS (12)
  1. PAXIL [Suspect]
     Indication: MAJOR DEPRESSION
     Dosage: 20MG PER DAY
     Route: 048
     Dates: start: 20040625, end: 20040629
  2. TOLEDOMIN [Concomitant]
     Indication: MAJOR DEPRESSION
     Route: 048
     Dates: start: 20040611, end: 20040701
  3. AMOXAN [Concomitant]
     Indication: MAJOR DEPRESSION
     Dosage: 30MG PER DAY
     Route: 048
     Dates: start: 20040611, end: 20040701
  4. SOLANAX [Concomitant]
     Indication: MAJOR DEPRESSION
     Dosage: 1.2MG PER DAY
     Route: 048
     Dates: start: 20040611, end: 20040701
  5. EURODIN [Concomitant]
     Indication: MAJOR DEPRESSION
     Route: 048
     Dates: start: 20040611, end: 20040701
  6. LAXOBERON [Concomitant]
     Indication: CONSTIPATION
     Dosage: 2.5MG PER DAY
     Route: 048
     Dates: start: 20040618, end: 20040701
  7. SENNOSIDE [Concomitant]
     Indication: CONSTIPATION
     Dosage: 12MG PER DAY
     Route: 048
     Dates: start: 20040625, end: 20040701
  8. DOMPERIDONE [Concomitant]
     Dates: start: 20040611
  9. ESTAZOLAM [Concomitant]
     Dates: start: 20040611
  10. MIDODRINE HYDROCHLORIDE [Concomitant]
     Dates: start: 20040618, end: 20040625
  11. MAGNESIUM PEROXIDE [Concomitant]
     Dates: start: 20040618
  12. FORIMEZIN [Concomitant]
     Indication: GASTRITIS
     Dosage: 30MG PER DAY
     Route: 048
     Dates: start: 20040611, end: 20040701

REACTIONS (7)
  - ABNORMAL BEHAVIOUR [None]
  - ANXIETY [None]
  - DEPRESSED LEVEL OF CONSCIOUSNESS [None]
  - FEAR [None]
  - PALPITATIONS [None]
  - PHOBIA [None]
  - STUPOR [None]
